FAERS Safety Report 6992998-2 (Version None)
Quarter: 2010Q3

REPORT INFORMATION
  Report Type: 
  Country: None (occurrence: None)
  Receive Date: 20100917
  Receipt Date: 20100916
  Transmission Date: 20110219
  Serious: Yes (Other)
  Sender: FDA-Public Use
  Company Number: JP-BRISTOL-MYERS SQUIBB COMPANY-15283203

PATIENT
  Sex: Female

DRUGS (6)
  1. CYCLOPHOSPHAMIDE [Suspect]
     Indication: BONE MARROW CONDITIONING REGIMEN
     Dosage: 20MG/KG FOR 4 DAYS (-6 TO-3), AFTER 8 MONTHS 60MG/KG FOR 4 DAYS (-7TO-4).
  2. CISPLATIN [Suspect]
     Indication: OESOPHAGEAL CANCER METASTATIC
     Dosage: TOTAL DOSE: 50MG
  3. FLUOROURACIL [Suspect]
     Indication: OESOPHAGEAL CANCER METASTATIC
     Dosage: TOTAL DOSE: 5000MG
  4. RADIATION THERAPY [Suspect]
     Indication: BONE MARROW CONDITIONING REGIMEN
     Dosage: 1DF=30GY; A TOTAL DOSE OF 30.4GY/21 FRACTIONS.
  5. RADIATION THERAPY [Suspect]
     Indication: OESOPHAGEAL CANCER METASTATIC
     Dosage: 1DF=30GY; A TOTAL DOSE OF 30.4GY/21 FRACTIONS.
  6. ANTI-THYMOCYTE GLOBULIN NOS [Suspect]
     Indication: BONE MARROW CONDITIONING REGIMEN
     Dosage: 90MG/KG FOR 3DAYS (-4TO-2).

REACTIONS (3)
  - BONE MARROW FAILURE [None]
  - CHRONIC GRAFT VERSUS HOST DISEASE [None]
  - DIARRHOEA [None]
